FAERS Safety Report 16303724 (Version 2)
Quarter: 2019Q4

REPORT INFORMATION
  Report Type: Spontaneous
  Country: US (occurrence: US)
  Receive Date: 20190513
  Receipt Date: 20191106
  Transmission Date: 20200122
  Serious: Yes (Hospitalization, Other)
  Sender: FDA-Public Use
  Company Number: US-GLAXOSMITHKLINE-US2019GSK083531

PATIENT
  Sex: Female

DRUGS (1)
  1. PREVACID [Suspect]
     Active Substance: LANSOPRAZOLE
     Indication: GASTROOESOPHAGEAL REFLUX DISEASE
     Dosage: 15 MG, QD
     Route: 065

REACTIONS (7)
  - Nocturia [Unknown]
  - Ureterolithiasis [Unknown]
  - Renal stone removal [Unknown]
  - Nephropathy [Unknown]
  - Chronic kidney disease [Unknown]
  - Diabetic nephropathy [Unknown]
  - Nephrolithiasis [Unknown]
